FAERS Safety Report 6418749-8 (Version None)
Quarter: 2009Q4

REPORT INFORMATION
  Report Type: 
  Country: None (occurrence: None)
  Receive Date: 20091026
  Receipt Date: 20091009
  Transmission Date: 20100525
  Serious: Yes (Hospitalization, Other)
  Sender: FDA-Public Use
  Company Number: AUR-APL- 2009-00872

PATIENT
  Age: 70 Year
  Sex: Male

DRUGS (11)
  1. MELOXICAM [Suspect]
  2. FLUCONAZOLE [Suspect]
  3. THALIDOMIDE [Suspect]
  4. DEXAMETHASONE [Suspect]
  5. PAMIDRONIC ACID [Suspect]
  6. CEFEPIME [Suspect]
  7. VANCOMYCIN [Suspect]
  8. MORPHINE [Suspect]
  9. ACETAMINOPHEN [Suspect]
  10. HEPARIN [Suspect]
  11. ENOXAPARIN SODIUM [Suspect]

REACTIONS (12)
  - ACUTE GENERALISED EXANTHEMATOUS PUSTULOSIS [None]
  - ATRIAL FIBRILLATION [None]
  - BACK PAIN [None]
  - FEBRILE NEUTROPENIA [None]
  - HAEMATOCRIT DECREASED [None]
  - HAEMOGLOBIN DECREASED [None]
  - ORAL CANDIDIASIS [None]
  - PHARYNGITIS [None]
  - PLATELET COUNT DECREASED [None]
  - PSEUDOMONAS INFECTION [None]
  - STREPTOCOCCAL INFECTION [None]
  - WHITE BLOOD CELL COUNT DECREASED [None]
